FAERS Safety Report 7559392-7 (Version None)
Quarter: 2011Q2

REPORT INFORMATION
  Report Type: 
  Country: None (occurrence: None)
  Receive Date: 20110621
  Receipt Date: 20110617
  Transmission Date: 20111010
  Serious: Yes (Other)
  Sender: FDA-Public Use
  Company Number: FR-PFIZER INC-2010032130

PATIENT
  Sex: Female
  Weight: 74 kg

DRUGS (1)
  1. AROMASIN [Suspect]
     Indication: BREAST CANCER
     Dosage: UNK

REACTIONS (2)
  - HYPERTRIGLYCERIDAEMIA [None]
  - ARTHRALGIA [None]
